FAERS Safety Report 6150452-4 (Version None)
Quarter: 2009Q2

REPORT INFORMATION
  Report Type: 
  Country: None (occurrence: None)
  Receive Date: 20090409
  Receipt Date: 20090403
  Transmission Date: 20091009
  Serious: Yes (Other)
  Sender: FDA-Public Use
  Company Number: PHEH2009US02210

PATIENT
  Sex: Female
  Weight: 58.957 kg

DRUGS (9)
  1. RECLAST [Suspect]
     Indication: OSTEOPOROSIS
     Dosage: 5 MG YEARLY
     Route: 042
     Dates: start: 20081124
  2. CRESTOR [Concomitant]
     Dosage: 10 MG, QD
  3. PLAVIX [Concomitant]
     Dosage: 75 MG, QD
  4. ATENOLOL [Concomitant]
     Dosage: 25 MG, QD
  5. OMEPRAZOLE [Concomitant]
     Dosage: 20 MG, QD
  6. MICARDIS [Concomitant]
     Dosage: 40 MG, QD
  7. AMBIEN [Concomitant]
     Dosage: 10 MG, UNK
  8. FOLIC ACID [Concomitant]
     Dosage: UNK
  9. METOCLOPRAMIDE [Concomitant]
     Dosage: 5 MG, QD

REACTIONS (6)
  - BLOOD CREATININE INCREASED [None]
  - BLOOD UREA INCREASED [None]
  - GENERAL PHYSICAL HEALTH DETERIORATION [None]
  - HAEMOGLOBIN DECREASED [None]
  - HYPOVOLAEMIA [None]
  - RENAL FAILURE [None]
